FAERS Safety Report 12234591 (Version 1)
Quarter: 2016Q2

REPORT INFORMATION
  Report Type: Spontaneous
  Country: US (occurrence: None)
  Receive Date: 20160401
  Receipt Date: 20160401
  Transmission Date: 20160815
  Serious: No
  Sender: FDA-Public Use
  Company Number: None

PATIENT
  Age: 63 Year
  Sex: Female

DRUGS (1)
  1. CAPECITABINE 500 MG TEVA [Suspect]
     Active Substance: CAPECITABINE
     Indication: HEPATIC CANCER
     Dosage: 1000 MG TWICE A DAY MON TO FRI PO
     Route: 048
     Dates: start: 20160314

REACTIONS (4)
  - Palmar-plantar erythrodysaesthesia syndrome [None]
  - Hypoaesthesia [None]
  - Paraesthesia [None]
  - Neuropathy peripheral [None]

NARRATIVE: CASE EVENT DATE: 20160330
